FAERS Safety Report 4511920-1 (Version None)
Quarter: 2004Q4

REPORT INFORMATION
  Report Type: 
  Country: None (occurrence: None)
  Receive Date: 20041129
  Receipt Date: 20041122
  Transmission Date: 20050328
  Serious: Yes (Hospitalization)
  Sender: FDA-Public Use
  Company Number: DE-MERCK-0411DEU00440

PATIENT
  Sex: Male

DRUGS (2)
  1. VIOXX [Suspect]
     Indication: ARTHRALGIA
     Route: 048
     Dates: start: 20040316, end: 20040301
  2. VIOXX [Suspect]
     Route: 048
     Dates: start: 20040324, end: 20040419

REACTIONS (1)
  - MYOCARDIAL INFARCTION [None]
